FAERS Safety Report 9689055 (Version 2)
Quarter: 2014Q1

REPORT INFORMATION
  Report Type: Spontaneous
  Country: US (occurrence: US)
  Receive Date: 20131114
  Receipt Date: 20140107
  Transmission Date: 20141002
  Serious: No
  Sender: FDA-Public Use
  Company Number: US-009507513-1311USA005227

PATIENT
  Age: 74 Year
  Sex: Female
  Weight: 70.3 kg

DRUGS (1)
  1. OXYTROL FOR WOMEN [Suspect]
     Indication: HYPERTONIC BLADDER
     Dosage: 1 DF, Q4D
     Route: 062
     Dates: start: 20131027, end: 20131031

REACTIONS (7)
  - Application site infection [Recovered/Resolved]
  - Rash pustular [Recovered/Resolved]
  - Pyrexia [Recovered/Resolved]
  - Application site warmth [Recovered/Resolved]
  - Application site nodule [Recovering/Resolving]
  - Application site pruritus [Recovered/Resolved]
  - Application site erythema [Recovering/Resolving]
